FAERS Safety Report 11966316 (Version 2)
Quarter: 2016Q1

REPORT INFORMATION
  Report Type: Spontaneous
  Country: JP (occurrence: JP)
  Receive Date: 20160127
  Receipt Date: 20160330
  Transmission Date: 20160526
  Serious: Yes (Other)
  Sender: FDA-Public Use
  Company Number: JP-PFIZER INC-2015431648

PATIENT
  Age: 63 Year
  Sex: Male
  Weight: 63 kg

DRUGS (1)
  1. TORISEL [Suspect]
     Active Substance: TEMSIROLIMUS
     Indication: METASTATIC RENAL CELL CARCINOMA
     Dosage: 25 MG, CYCLIC
     Route: 041
     Dates: start: 20151112

REACTIONS (6)
  - Haemoglobin decreased [Recovering/Resolving]
  - Ascites [Recovering/Resolving]
  - Pigmentation disorder [Recovering/Resolving]
  - Disease progression [Not Recovered/Not Resolved]
  - Metastatic renal cell carcinoma [Not Recovered/Not Resolved]
  - Malaise [Recovered/Resolved]

NARRATIVE: CASE EVENT DATE: 20151217
